FAERS Safety Report 7903185-5 (Version None)
Quarter: 2011Q4

REPORT INFORMATION
  Report Type: 
  Country: None (occurrence: None)
  Receive Date: 20111103
  Receipt Date: 20111027
  Transmission Date: 20120403
  Serious: Yes (Other)
  Sender: FDA-Public Use
  Company Number: 2011SP034591

PATIENT
  Age: 47 Year
  Sex: Female

DRUGS (9)
  1. LORTAB [Concomitant]
  2. PRILOSEC [Concomitant]
  3. LITHIUM [Concomitant]
  4. LEXAPRO [Concomitant]
  5. NEURONTIN [Concomitant]
  6. FLEXERIL [Concomitant]
  7. XANAX [Concomitant]
  8. CELEBREX [Concomitant]
  9. SAPHRIS [Suspect]
     Indication: BIPOLAR DISORDER
     Dosage: 10 MG;BID;SL
     Route: 060
     Dates: end: 20110701

REACTIONS (6)
  - HEAD INJURY [None]
  - MEMORY IMPAIRMENT [None]
  - BALANCE DISORDER [None]
  - DIZZINESS [None]
  - FEELING ABNORMAL [None]
  - DRUG ABUSE [None]
